FAERS Safety Report 12984452 (Version 1)
Quarter: 2016Q4

REPORT INFORMATION
  Report Type: Spontaneous
  Country: TR (occurrence: TR)
  Receive Date: 20161129
  Receipt Date: 20161129
  Transmission Date: 20170207
  Serious: Yes (Hospitalization)
  Sender: FDA-Public Use
  Company Number: TR-ELI_LILLY_AND_COMPANY-TR201611009608

PATIENT
  Age: 28 Year
  Sex: Female
  Weight: 58 kg

DRUGS (3)
  1. EQIZOLIN [Suspect]
     Active Substance: CEFAZOLIN SODIUM
     Indication: PRODUCT USED FOR UNKNOWN INDICATION
     Dosage: UNK UNK, QD
     Route: 042
     Dates: start: 20161007, end: 20161008
  2. CYMBALTA [Suspect]
     Active Substance: DULOXETINE HYDROCHLORIDE
     Indication: PRODUCT USED FOR UNKNOWN INDICATION
     Dosage: 90 MG, QD
     Route: 048
     Dates: start: 201603, end: 20161007
  3. EQIZOLIN [Suspect]
     Active Substance: CEFAZOLIN SODIUM
     Dosage: UNK UNK, QD
     Route: 030
     Dates: start: 20161009, end: 20161009

REACTIONS (7)
  - Aneurysm ruptured [Unknown]
  - Arteriovenous malformation [Unknown]
  - Seizure [Unknown]
  - Haemorrhage [Unknown]
  - Drug withdrawal syndrome [Unknown]
  - Disease recurrence [None]
  - Dizziness [Unknown]

NARRATIVE: CASE EVENT DATE: 20161007
